FAERS Safety Report 4558862-3 (Version None)
Quarter: 2005Q1

REPORT INFORMATION
  Report Type: 
  Country: None (occurrence: None)
  Receive Date: 20050121
  Receipt Date: 20050111
  Transmission Date: 20050727
  Serious: Yes (Hospitalization)
  Sender: FDA-Public Use
  Company Number: FR-MERCK-0501FRA00034

PATIENT
  Age: 60 Year
  Sex: Male
  Weight: 83 kg

DRUGS (7)
  1. ZOCOR [Suspect]
     Route: 048
     Dates: start: 20040330
  2. ASPIRIN LYSINE [Suspect]
     Route: 048
     Dates: start: 20040330, end: 20041122
  3. THALIDOMIDE [Suspect]
     Route: 048
     Dates: start: 20040722
  4. ZOLEDRONIC ACID [Suspect]
     Route: 041
     Dates: start: 20040722, end: 20041117
  5. INDAPAMIDE [Suspect]
     Route: 048
     Dates: start: 20040427, end: 20041120
  6. AMLODIPINE BESYLATE [Suspect]
     Route: 048
     Dates: start: 20040330, end: 20041120
  7. EPOETIN BETA [Concomitant]
     Route: 058

REACTIONS (1)
  - RENAL FAILURE ACUTE [None]
